FAERS Safety Report 18688913 (Version 1)
Quarter: 2020Q4

REPORT INFORMATION
  Report Type: Spontaneous
  Country: KE (occurrence: KE)
  Receive Date: 20201231
  Receipt Date: 20201231
  Transmission Date: 20210114
  Serious: Yes (Other)
  Sender: FDA-Public Use
  Company Number: KE-SUN PHARMACEUTICAL INDUSTRIES LTD-2020R1-273761

PATIENT
  Age: 6 Year
  Sex: Female
  Weight: 26.5 kg

DRUGS (1)
  1. LEUPROLIDE [Suspect]
     Active Substance: LEUPROLIDE
     Indication: PRECOCIOUS PUBERTY
     Dosage: UNK
     Route: 065

REACTIONS (1)
  - Idiopathic intracranial hypertension [Unknown]
